FAERS Safety Report 4346967-1 (Version None)
Quarter: 2004Q1

REPORT INFORMATION
  Report Type: 
  Country: None (occurrence: None)
  Receive Date: 20040329
  Receipt Date: 20031219
  Transmission Date: 20041129
  Serious: No
  Sender: FDA-Public Use
  Company Number: USA031254808

PATIENT
  Age: 31 Year
  Sex: Female
  Weight: 55 kg

DRUGS (2)
  1. STRATTERA [Suspect]
     Indication: ATTENTION DEFICIT/HYPERACTIVITY DISORDER
     Dosage: 40 MG/DAY
     Dates: start: 20030815
  2. VITAMIN NOS [Concomitant]

REACTIONS (6)
  - DRUG EFFECT DECREASED [None]
  - FATIGUE [None]
  - FEELING ABNORMAL [None]
  - INSOMNIA [None]
  - IRRITABILITY [None]
  - NAIL DISORDER [None]
